FAERS Safety Report 8419390-8 (Version None)
Quarter: 2012Q2

REPORT INFORMATION
  Report Type: 
  Country: None (occurrence: None)
  Receive Date: 20120607
  Receipt Date: 20120531
  Transmission Date: 20120825
  Serious: Yes (Hospitalization)
  Sender: FDA-Public Use
  Company Number: US-GLAXOSMITHKLINE-A0875634A

PATIENT
  Age: 72 Year
  Sex: Male
  Weight: 97.7 kg

DRUGS (10)
  1. CARDURA [Concomitant]
  2. ZETIA [Concomitant]
  3. LOPRESSOR [Concomitant]
  4. XENICAL [Concomitant]
     Dates: end: 20040625
  5. GLUCOTROL [Concomitant]
  6. HYDROCHLOROTHIAZIDE [Concomitant]
  7. PROTONIX [Concomitant]
  8. PAXIL [Concomitant]
  9. VIAGRA [Concomitant]
     Dates: end: 20040625
  10. AVANDIA [Suspect]
     Indication: DIABETES MELLITUS
     Dosage: 8MG PER DAY
     Route: 048
     Dates: start: 20000101, end: 20061208

REACTIONS (4)
  - CORONARY ARTERY DISEASE [None]
  - ATRIAL FIBRILLATION [None]
  - CARDIAC FAILURE CONGESTIVE [None]
  - MYOCARDIAL INFARCTION [None]
